FAERS Safety Report 8409695-9 (Version None)
Quarter: 2012Q2

REPORT INFORMATION
  Report Type: 
  Country: None (occurrence: None)
  Receive Date: 20120529
  Receipt Date: 20120515
  Transmission Date: 20120825
  Serious: Yes (Other)
  Sender: FDA-Public Use
  Company Number: 1288633

PATIENT
  Age: 54 Year
  Sex: Female
  Weight: 108.64 kg

DRUGS (1)
  1. PACLITAXEL [Suspect]
     Indication: UTERINE CANCER
     Dosage: 350 MG, Q 3 WKS, INTRAVENOUS
     Route: 042
     Dates: start: 20120515, end: 20120515

REACTIONS (6)
  - COUGH [None]
  - HEART RATE INCREASED [None]
  - NAUSEA [None]
  - DRUG HYPERSENSITIVITY [None]
  - BACK PAIN [None]
  - DIZZINESS [None]
